FAERS Safety Report 10038134 (Version 1)
Quarter: 2014Q1

REPORT INFORMATION
  Report Type: Spontaneous
  Country: US (occurrence: None)
  Receive Date: 20140306
  Receipt Date: 20140306
  Transmission Date: 20141002
  Serious: Yes (Hospitalization, Other)
  Sender: FDA-Public Use
  Company Number: 163-21880-13043775

PATIENT
  Age: 69 Year
  Sex: Female
  Weight: 62.78 kg

DRUGS (19)
  1. REVLIMID [Suspect]
     Indication: PLASMA CELL MYELOMA
     Dosage: 25 MG, 14 IN 21 D, PO
     Route: 048
     Dates: start: 20130228
  2. VELCADE (BORTEZOMIB) [Concomitant]
  3. DEXAMETHASONE (DEXAMETHASONE) [Concomitant]
  4. ACYCLOVIR (ACICLOVIR) [Concomitant]
  5. BACTRIM DS (BACTRIM) [Concomitant]
  6. PACKED RED BLOOD CELLS (RED BLOOD CELLS) [Concomitant]
  7. PERCOCET (OXYCOCET) [Concomitant]
  8. IBUPROFEN (IBUPROFEN) [Concomitant]
  9. IRON (IRON) [Concomitant]
  10. LASIX (FUROSEMIDE) [Concomitant]
  11. VITAMIN D3 (COLECALCIFEROL) [Concomitant]
  12. WOMENS ONE DAILY (VITAMINS) [Concomitant]
  13. COUMADIN (WARFARIN SODIUM) [Concomitant]
  14. SENNA (SENNA) [Concomitant]
  15. DOCUSATE SODIUM (DOCUSATE SODIUM) [Concomitant]
  16. ZOFRAN (ONDANSETRON HYDROCHLORIDE) [Concomitant]
  17. VANCOMYCIN (VANCOMYCIN) [Concomitant]
  18. CIPROFLOXACIN (CIPROFLOXACIN) [Concomitant]
  19. TRAZADONE (TRAZODONE) [Concomitant]

REACTIONS (2)
  - Pancytopenia [None]
  - Intervertebral discitis [None]
